FAERS Safety Report 9098945 (Version 2)
Quarter: 2013Q1

REPORT INFORMATION
  Report Type: Spontaneous
  Country: US (occurrence: US)
  Receive Date: 20130116
  Receipt Date: 20130116
  Transmission Date: 20140127
  Serious: Yes (Other)
  Sender: FDA-Public Use
  Company Number: US-ELI_LILLY_AND_COMPANY-US201104006517

PATIENT
  Age: 51 None
  Sex: Female

DRUGS (14)
  1. FORTEO [Suspect]
     Indication: OSTEOPOROSIS
     Dosage: 20 UG, QD
     Dates: start: 201102
  2. FORTEO [Suspect]
     Dosage: 20 UG, QD
     Dates: start: 201102
  3. AMITRIPTYLINE [Concomitant]
     Dosage: 50 MG, EACH EVENING
  4. SOMA [Concomitant]
     Indication: MUSCLE SPASMS
     Dosage: UNK
  5. ADVIL                              /00109201/ [Concomitant]
     Dosage: UNK
  6. HUMIRA [Concomitant]
     Dosage: 40 MG, 2/M
     Route: 058
  7. AMRIX [Concomitant]
     Dosage: 30 MG, EACH EVENING
  8. CALCIUM +VIT D [Concomitant]
     Dosage: UNK UNK, QD
  9. LORAZEPAM [Concomitant]
     Dosage: UNK, BID
  10. LYRICA [Concomitant]
     Dosage: 150 MG, TID
  11. NUCYNTA [Concomitant]
     Dosage: UNK
  12. RAMIPRIL [Concomitant]
     Dosage: 5 MG, EACH EVENING
  13. TEMAZEPAM [Concomitant]
     Dosage: 30 MG, EACH EVENING
  14. LANSOPRAZOLE [Concomitant]
     Dosage: 30 MG, EACH EVENING

REACTIONS (6)
  - Femur fracture [Unknown]
  - Injection site urticaria [Unknown]
  - Drug dose omission [Unknown]
  - Malaise [Unknown]
  - Aphonia [Unknown]
  - Pain in extremity [Unknown]
